FAERS Safety Report 4542002-0 (Version None)
Quarter: 2004Q4

REPORT INFORMATION
  Report Type: 
  Country: None (occurrence: None)
  Receive Date: 20041227
  Receipt Date: 20041216
  Transmission Date: 20050328
  Serious: Yes (Disabling)
  Sender: FDA-Public Use
  Company Number: 2004113976

PATIENT
  Age: 50 Year
  Sex: Female
  Weight: 48.9885 kg

DRUGS (3)
  1. XANAX [Suspect]
     Indication: INSOMNIA
     Dosage: 0.5 MG (0.5 MG, PRN INTERVAL: AS NEEDED), ORAL
     Route: 048
     Dates: start: 20040901
  2. PROGESTERONE [Concomitant]
  3. SERENOA REPENS (SERENOA REPENS) [Concomitant]

REACTIONS (4)
  - DIZZINESS [None]
  - MIGRAINE [None]
  - VERTIGO [None]
  - VISION BLURRED [None]
